FAERS Safety Report 17706234 (Version 1)
Quarter: 2020Q2

REPORT INFORMATION
  Report Type: Spontaneous
  Country: US (occurrence: US)
  Receive Date: 20200424
  Receipt Date: 20200424
  Transmission Date: 20200714
  Serious: Yes (Hospitalization, Other)
  Sender: FDA-Public Use
  Company Number: US-GILEAD-US-CVT-090261

PATIENT
  Age: 68 Year
  Sex: Male

DRUGS (22)
  1. RANEXA [Suspect]
     Active Substance: RANOLAZINE
     Route: 048
     Dates: start: 20090509
  2. RANEXA [Suspect]
     Active Substance: RANOLAZINE
     Route: 048
     Dates: start: 20090206, end: 20090208
  3. RANEXA [Suspect]
     Active Substance: RANOLAZINE
     Route: 048
     Dates: start: 20090216, end: 20090505
  4. ISOSORBIDE. [Concomitant]
     Active Substance: ISOSORBIDE
     Route: 048
     Dates: start: 200901
  5. KETOPROFEN. [Concomitant]
     Active Substance: KETOPROFEN
     Indication: PRODUCT USED FOR UNKNOWN INDICATION
     Route: 048
  6. OMEPRAZOLE. [Concomitant]
     Active Substance: OMEPRAZOLE
     Indication: PRODUCT USED FOR UNKNOWN INDICATION
     Route: 048
  7. METFORMIN                          /00082701/ [Concomitant]
     Indication: PRODUCT USED FOR UNKNOWN INDICATION
  8. NEBIVOLOL. [Concomitant]
     Active Substance: NEBIVOLOL
  9. ATORVASTATIN [Concomitant]
     Active Substance: ATORVASTATIN
  10. INSULIN [Concomitant]
     Active Substance: INSULIN NOS
  11. RANEXA [Suspect]
     Active Substance: RANOLAZINE
     Route: 048
     Dates: start: 20090507, end: 20090508
  12. AMLODIPINE [Concomitant]
     Active Substance: AMLODIPINE BESYLATE
     Indication: ANGINA PECTORIS
     Route: 048
     Dates: start: 200901
  13. ATORVASTATIN                       /01326101/ [Concomitant]
     Active Substance: ATORVASTATIN
     Indication: PRODUCT USED FOR UNKNOWN INDICATION
     Route: 048
  14. SITAGLIPTIN PHOSPHATE [Concomitant]
     Active Substance: SITAGLIPTIN PHOSPHATE
     Indication: PRODUCT USED FOR UNKNOWN INDICATION
     Route: 048
  15. IRBESARTAN. [Concomitant]
     Active Substance: IRBESARTAN
     Indication: PRODUCT USED FOR UNKNOWN INDICATION
     Route: 048
  16. NEBIVOLOL HYDROCHLORIDE [Interacting]
     Active Substance: NEBIVOLOL HYDROCHLORIDE
     Indication: PRODUCT USED FOR UNKNOWN INDICATION
     Route: 048
  17. INSULIN                            /00030501/ [Concomitant]
     Indication: PRODUCT USED FOR UNKNOWN INDICATION
     Route: 058
  18. RANEXA [Suspect]
     Active Substance: RANOLAZINE
     Route: 048
     Dates: start: 20090209, end: 20090215
  19. ISOSORBIDE. [Concomitant]
     Active Substance: ISOSORBIDE
     Indication: PRODUCT USED FOR UNKNOWN INDICATION
     Route: 048
     Dates: end: 200901
  20. GLIMEPIRIDE. [Concomitant]
     Active Substance: GLIMEPIRIDE
     Indication: PRODUCT USED FOR UNKNOWN INDICATION
     Route: 048
  21. RANEXA [Suspect]
     Active Substance: RANOLAZINE
     Indication: ANGINA PECTORIS
     Route: 048
     Dates: start: 20090201, end: 20090205
  22. METFORMIN [Concomitant]
     Active Substance: METFORMIN HYDROCHLORIDE

REACTIONS (13)
  - Nodal rhythm [Recovered/Resolved]
  - Hypotension [Unknown]
  - Nausea [Recovered/Resolved]
  - Vomiting [Recovered/Resolved]
  - Renal failure [Unknown]
  - Drug interaction [Unknown]
  - Hyperkalaemia [Recovered/Resolved]
  - Atrial fibrillation [Recovered/Resolved]
  - Dyspnoea [Unknown]
  - Oedema peripheral [Recovered/Resolved]
  - Dizziness [Recovered/Resolved]
  - Loss of consciousness [Unknown]
  - Bradycardia [Recovered/Resolved]

NARRATIVE: CASE EVENT DATE: 20090207
